FAERS Safety Report 4747772-4 (Version None)
Quarter: 2005Q3

REPORT INFORMATION
  Report Type: 
  Country: None (occurrence: None)
  Receive Date: 20050817
  Receipt Date: 20050817
  Transmission Date: 20060218
  Serious: Yes (Hospitalization)
  Sender: FDA-Public Use
  Company Number: None

PATIENT
  Age: 75 Year
  Sex: Male
  Weight: 82 kg

DRUGS (1)
  1. NOVOLIN 70/30 [Suspect]
     Indication: DIABETES MELLITUS
     Dosage: 25 UNITS BID SUBCUTANEOUS
     Route: 058
     Dates: start: 20040215, end: 20050515

REACTIONS (3)
  - HYPOGLYCAEMIA [None]
  - MALAISE [None]
  - ORAL INTAKE REDUCED [None]
